FAERS Safety Report 24924014 (Version 1)
Quarter: 2025Q1

REPORT INFORMATION
  Report Type: Spontaneous
  Country: US (occurrence: US)
  Receive Date: 20250204
  Receipt Date: 20250204
  Transmission Date: 20250409
  Serious: No
  Sender: BAUSCH AND LOMB
  Company Number: US-BAUSCH-BL-2025-001238

PATIENT
  Age: 93 Year
  Sex: Female

DRUGS (1)
  1. IPRATROPIUM BROMIDE [Suspect]
     Active Substance: IPRATROPIUM BROMIDE
     Indication: Rhinorrhoea
     Route: 065
     Dates: start: 202407, end: 202501

REACTIONS (2)
  - Abdominal distension [Recovering/Resolving]
  - Dry throat [Unknown]

NARRATIVE: CASE EVENT DATE: 20241201
